FAERS Safety Report 17298999 (Version 1)
Quarter: 2020Q1

REPORT INFORMATION
  Report Type: Spontaneous
  Country: KR (occurrence: KR)
  Receive Date: 20200121
  Receipt Date: 20200121
  Transmission Date: 20200409
  Serious: Yes (Death)
  Sender: FDA-Public Use
  Company Number: KR-SA-2020SA015982

PATIENT

DRUGS (1)
  1. VANDETANIB. [Suspect]
     Active Substance: VANDETANIB
     Indication: NON-SMALL CELL LUNG CANCER
     Dosage: 300 MG, QD
     Route: 048

REACTIONS (4)
  - Corneal disorder [Fatal]
  - Visual impairment [Fatal]
  - Visual acuity reduced [Fatal]
  - Corneal lesion [Fatal]
